FAERS Safety Report 7328497-8 (Version None)
Quarter: 2011Q1

REPORT INFORMATION
  Report Type: 
  Country: None (occurrence: None)
  Receive Date: 20110303
  Receipt Date: 20110221
  Transmission Date: 20110831
  Serious: Yes (Life-Threatening, Hospitalization)
  Sender: FDA-Public Use
  Company Number: US-JNJFOC-20100404265

PATIENT
  Sex: Male
  Weight: 47.8 kg

DRUGS (14)
  1. CALCIUM CARBONATE [Concomitant]
  2. IRON [Concomitant]
  3. METHOTREXATE [Suspect]
     Indication: CROHN'S DISEASE
  4. FOLIC ACID [Concomitant]
  5. MIRALAX [Concomitant]
  6. CHOLECALCIFEROL [Concomitant]
  7. COTRIM [Concomitant]
  8. INFLIXIMAB [Suspect]
     Indication: CROHN'S DISEASE
     Dosage: PRIOR TO REGISTRY
     Route: 042
  9. HUMIRA [Suspect]
     Indication: CROHN'S DISEASE
  10. PEPTAMEN [Concomitant]
  11. RIFAXIMIN [Concomitant]
  12. PREDNISONE [Suspect]
     Indication: CROHN'S DISEASE
  13. IMODIUM [Concomitant]
  14. MORPHINE [Concomitant]

REACTIONS (4)
  - TRANSFUSION REACTION [None]
  - SHOCK HAEMORRHAGIC [None]
  - MULTI-ORGAN FAILURE [None]
  - ACUTE MONOCYTIC LEUKAEMIA [None]
